FAERS Safety Report 8128131-3 (Version None)
Quarter: 2012Q1

REPORT INFORMATION
  Report Type: 
  Country: None (occurrence: None)
  Receive Date: 20120210
  Receipt Date: 20120201
  Transmission Date: 20120608
  Serious: Yes (Other)
  Sender: FDA-Public Use
  Company Number: NL-PERRIGO-12NL001020

PATIENT
  Sex: Male

DRUGS (3)
  1. ACETAMINOPHEN [Suspect]
     Indication: POSTOPERATIVE ANALGESIA
     Dosage: 1 G, QD
     Route: 042
  2. ACETAMINOPHEN [Suspect]
     Indication: POSTOPERATIVE ANALGESIA
     Dosage: 4 G, QD
     Route: 054
  3. ACETAMINOPHEN [Suspect]
     Indication: ANALGESIC THERAPY
     Dosage: 1 G, SINGLE
     Route: 048

REACTIONS (2)
  - ASPARTATE AMINOTRANSFERASE INCREASED [None]
  - ALANINE AMINOTRANSFERASE INCREASED [None]
